FAERS Safety Report 7122060-X (Version None)
Quarter: 2010Q4

REPORT INFORMATION
  Report Type: 
  Country: None (occurrence: None)
  Receive Date: 20101124
  Receipt Date: 20101115
  Transmission Date: 20110411
  Serious: Yes (Congenital Anomaly)
  Sender: FDA-Public Use
  Company Number: B0685675A

PATIENT
  Sex: Male
  Weight: 2.46 kg

DRUGS (3)
  1. LAMOTRIGINE [Suspect]
     Indication: EPILEPSY
     Dosage: 800MG PER DAY
  2. TOPAMAX [Suspect]
     Indication: EPILEPSY
     Dosage: 800MG PER DAY
  3. LEVETIRACETAM [Suspect]
     Indication: EPILEPSY
     Dosage: 500MG PER DAY

REACTIONS (1)
  - PYLORIC STENOSIS [None]
